FAERS Safety Report 4433618-0 (Version None)
Quarter: 2004Q3

REPORT INFORMATION
  Report Type: 
  Country: None (occurrence: None)
  Receive Date: 20040825
  Receipt Date: 20040825
  Transmission Date: 20050211
  Serious: Yes (Other)
  Sender: FDA-Public Use
  Company Number: None

PATIENT
  Age: 88 Year
  Sex: Female

DRUGS (6)
  1. AMANTADINE HCL [Suspect]
     Indication: INFLUENZA
     Dosage: 100 MG PO DAILY
     Route: 048
     Dates: start: 20040126, end: 20040127
  2. PAXIL [Concomitant]
  3. BEXTRA [Concomitant]
  4. DARVOCET-N 100 [Concomitant]
  5. DITROPAN XL [Concomitant]
  6. XANAX [Concomitant]

REACTIONS (2)
  - CONFUSIONAL STATE [None]
  - HALLUCINATION [None]
